FAERS Safety Report 14938479 (Version 2)
Quarter: 2018Q2

REPORT INFORMATION
  Report Type: Report from Study
  Country: US (occurrence: GT)
  Receive Date: 20180525
  Receipt Date: 20180611
  Transmission Date: 20180711
  Serious: Yes (Hospitalization, Other)
  Sender: FDA-Public Use
  Company Number: US-SUNOVION-2018SUN002092

PATIENT
  Sex: Female
  Weight: 68.3 kg

DRUGS (7)
  1. GLYCOPYRROLATE. [Suspect]
     Active Substance: GLYCOPYRROLATE
     Indication: PRODUCT USED FOR UNKNOWN INDICATION
     Dosage: UNK, REGIMEN #1
     Route: 055
     Dates: end: 20180513
  2. RASILEZ [Suspect]
     Active Substance: ALISKIREN
     Indication: CARDIAC DISORDER
     Dosage: 300 MG, QD
     Route: 065
  3. DIOVAN [Suspect]
     Active Substance: VALSARTAN
     Indication: CARDIAC DISORDER
     Dosage: 320 MG, QD
     Route: 048
  4. CALCIUM [Concomitant]
     Active Substance: CALCIUM
     Dosage: UNKNOWN
     Route: 065
  5. ESOMEPRAZOLE [Concomitant]
     Active Substance: ESOMEPRAZOLE
     Dosage: UNKNOWN
     Route: 065
  6. CO-DIOVAN [Suspect]
     Active Substance: HYDROCHLOROTHIAZIDE\VALSARTAN
     Indication: CARDIAC DISORDER
     Dosage: 1 DF(HYDROCHLOROTHIAZIDE 25 MG, VALSARTAN 320 MG) , QD
     Route: 048
     Dates: end: 201704
  7. LIPITOR [Concomitant]
     Active Substance: ATORVASTATIN CALCIUM
     Indication: BLOOD TRIGLYCERIDES ABNORMAL
     Dosage: UNKNOWN
     Route: 065

REACTIONS (14)
  - Malaise [Unknown]
  - Pleural effusion [Unknown]
  - Osteoporosis [Unknown]
  - Condition aggravated [Unknown]
  - Blood pressure increased [Unknown]
  - Heart rate decreased [Unknown]
  - Chest pain [Unknown]
  - Pulmonary fibrosis [Unknown]
  - Gait inability [Unknown]
  - Intentional overdose [Unknown]
  - Calcium metabolism disorder [Unknown]
  - Limb deformity [Unknown]
  - Urinary tract infection [Unknown]
  - Muscular weakness [Unknown]
